FAERS Safety Report 4997792-X (Version None)
Quarter: 2006Q2

REPORT INFORMATION
  Report Type: 
  Country: None (occurrence: None)
  Receive Date: 20060510
  Receipt Date: 20060502
  Transmission Date: 20061013
  Serious: Yes (Disabling)
  Sender: FDA-Public Use
  Company Number: JP-JNJFOC-20060401311

PATIENT
  Age: 51 Year
  Sex: Male

DRUGS (3)
  1. TAVANIC [Suspect]
     Indication: PYELONEPHRITIS
     Route: 048
     Dates: start: 20060320, end: 20060324
  2. ANTIBIOTICS NOS [Concomitant]
     Indication: PYELONEPHRITIS
  3. ROXITHROMYCIN [Concomitant]

REACTIONS (3)
  - EXTRAOCULAR MUSCLE DISORDER [None]
  - EYE PAIN [None]
  - PERIORBITAL OEDEMA [None]
